FAERS Safety Report 20499567 (Version 2)
Quarter: 2022Q1

REPORT INFORMATION
  Report Type: Spontaneous
  Country: US (occurrence: US)
  Receive Date: 20220222
  Receipt Date: 20220324
  Transmission Date: 20220423
  Serious: Yes (Death, Other)
  Sender: FDA-Public Use
  Company Number: US-009507513-2202USA004637

PATIENT
  Age: 48 Year
  Sex: Female

DRUGS (1)
  1. KEYTRUDA [Suspect]
     Active Substance: PEMBROLIZUMAB
     Indication: Colorectal cancer metastatic
     Dosage: CYCLICAL

REACTIONS (5)
  - Cardiogenic shock [Fatal]
  - Immune-mediated myocarditis [Not Recovered/Not Resolved]
  - Hypothyroidism [Unknown]
  - Arthralgia [Recovering/Resolving]
  - Myalgia [Recovering/Resolving]
